FAERS Safety Report 4275160-6 (Version None)
Quarter: 2004Q1

REPORT INFORMATION
  Report Type: 
  Country: None (occurrence: None)
  Receive Date: 20040121
  Receipt Date: 20031117
  Transmission Date: 20041129
  Serious: Yes (Life-Threatening, Hospitalization)
  Sender: FDA-Public Use
  Company Number: PHRM2003FR03062

PATIENT
  Age: 57 Year
  Sex: Male

DRUGS (8)
  1. ZOMETA [Suspect]
     Indication: PROSTATE CANCER METASTATIC
     Dosage: 4 MG, ONCE/SINGLE
     Route: 042
     Dates: start: 20031024
  2. TRIATEC [Suspect]
  3. LASILIX [Suspect]
  4. CORDARONE X ^SANOFI-SYNTHELABO^ [Suspect]
  5. KREDEX [Suspect]
  6. PREVISCAN [Concomitant]
  7. DECAPEPTYL DEPOT [Concomitant]
  8. CASODEX [Concomitant]

REACTIONS (16)
  - CARDIAC FAILURE [None]
  - CHEST PAIN [None]
  - CHILLS [None]
  - CYTOLYTIC HEPATITIS [None]
  - HYPERHIDROSIS [None]
  - HYPERKALAEMIA [None]
  - HYPONATRAEMIA [None]
  - HYPOTHERMIA [None]
  - INTERSTITIAL LUNG DISEASE [None]
  - METABOLIC ACIDOSIS [None]
  - PLEURAL EFFUSION [None]
  - SEPSIS [None]
  - SHOCK [None]
  - SINUS BRADYCARDIA [None]
  - SYNCOPE [None]
  - URINARY TRACT INFECTION ENTEROCOCCAL [None]
